FAERS Safety Report 4878628-4 (Version None)
Quarter: 2005Q4

REPORT INFORMATION
  Report Type: 
  Country: None (occurrence: None)
  Receive Date: 20051216
  Receipt Date: 20050411
  Transmission Date: 20060501
  Serious: Yes (Other)
  Sender: FDA-Public Use
  Company Number: 2005057258

PATIENT
  Sex: Female

DRUGS (1)
  1. UNISOM [Suspect]
     Dosage: 15 TABLETS ONCE, ORAL
     Route: 048

REACTIONS (4)
  - FEELING JITTERY [None]
  - MEDICATION ERROR [None]
  - MYDRIASIS [None]
  - OVERDOSE [None]
